FAERS Safety Report 24835496 (Version 1)
Quarter: 2025Q1

REPORT INFORMATION
  Report Type: Spontaneous
  Country: US (occurrence: None)
  Receive Date: 20250112
  Receipt Date: 20250112
  Transmission Date: 20250409
  Serious: Yes (Death)
  Sender: FDA-CTU
  Company Number: None

PATIENT
  Age: 59 Year
  Sex: Female
  Weight: 58 kg

DRUGS (4)
  1. FLUOROURACIL [Suspect]
     Active Substance: FLUOROURACIL
  2. DEXAMETHASONE [Suspect]
     Active Substance: DEXAMETHASONE
  3. FLOXURIDINE (FUDR) [Concomitant]
  4. HEPARIN SODIUM [Suspect]
     Active Substance: HEPARIN SODIUM

REACTIONS (2)
  - Hepatic failure [None]
  - Disease progression [None]

NARRATIVE: CASE EVENT DATE: 20250109
